FAERS Safety Report 16527655 (Version 1)
Quarter: 2019Q3

REPORT INFORMATION
  Report Type: Spontaneous
  Country: GB (occurrence: GB)
  Receive Date: 20190703
  Receipt Date: 20190703
  Transmission Date: 20191004
  Serious: Yes (Other)
  Sender: FDA-Public Use
  Company Number: GB-MYLANLABS-2019M1060947

PATIENT
  Age: 15 Year
  Sex: Female

DRUGS (2)
  1. YASMIN [Concomitant]
     Active Substance: DROSPIRENONE\ETHINYL ESTRADIOL
     Dosage: UNK
  2. ISOTRETINOIN. [Suspect]
     Active Substance: ISOTRETINOIN
     Indication: ACNE
     Dosage: UNK
     Route: 048
     Dates: start: 20181221, end: 20190101

REACTIONS (6)
  - Thirst [Unknown]
  - Type 1 diabetes mellitus [Not Recovered/Not Resolved]
  - Dry mouth [Unknown]
  - Glycosuria [Unknown]
  - Diabetic ketoacidosis [Unknown]
  - Polyuria [Unknown]

NARRATIVE: CASE EVENT DATE: 20190101
